FAERS Safety Report 10219451 (Version 1)
Quarter: 2014Q2

REPORT INFORMATION
  Report Type: Spontaneous
  Country: US (occurrence: None)
  Receive Date: 20140604
  Receipt Date: 20140604
  Transmission Date: 20141212
  Serious: No
  Sender: FDA-Public Use
  Company Number: None

PATIENT
  Sex: Female

DRUGS (1)
  1. FORTEO 600 MCG LILLY [Suspect]
     Indication: OSTEOPOROSIS
     Route: 058
     Dates: start: 20140505

REACTIONS (5)
  - Rash [None]
  - Rash [None]
  - Joint swelling [None]
  - Chest pain [None]
  - Gastrooesophageal reflux disease [None]
